FAERS Safety Report 4859679-2 (Version None)
Quarter: 2005Q4

REPORT INFORMATION
  Report Type: 
  Country: None (occurrence: None)
  Receive Date: 20051219
  Receipt Date: 20051205
  Transmission Date: 20060501
  Serious: Yes (Hospitalization)
  Sender: FDA-Public Use
  Company Number: US-KINGPHARMUSA00001-K200501553

PATIENT
  Age: 52 Year
  Sex: Male

DRUGS (3)
  1. ALTACE [Suspect]
     Indication: MYOCARDIAL INFARCTION
     Route: 048
     Dates: start: 20050909, end: 20050925
  2. SELOKEN [Suspect]
     Indication: MYOCARDIAL INFARCTION
     Dosage: UNK, UNK
     Route: 048
     Dates: start: 20050909, end: 20050925
  3. ELISOR [Suspect]
     Indication: MYOCARDIAL INFARCTION
     Dosage: 1 TABLET QD
     Route: 048
     Dates: start: 20050909, end: 20050925

REACTIONS (4)
  - ARTHRALGIA [None]
  - LEUKOCYTOCLASTIC VASCULITIS [None]
  - PYREXIA [None]
  - URTICARIA GENERALISED [None]
